FAERS Safety Report 9135906 (Version 1)
Quarter: 2013Q1

REPORT INFORMATION
  Report Type: Spontaneous
  Country: US (occurrence: None)
  Receive Date: 20130227
  Receipt Date: 20130227
  Transmission Date: 20140127
  Serious: Yes (Death, Other)
  Sender: FDA-Public Use
  Company Number: AUR-APL-2013-00618

PATIENT
  Age: 52 Year
  Sex: Female

DRUGS (2)
  1. CARISOPRODOL (CARISOPRODOL) [Suspect]
     Route: 048
  2. TRAZODONE (TRAZODONE) [Suspect]

REACTIONS (3)
  - Completed suicide [None]
  - Cardiac arrest [None]
  - Respiratory arrest [None]
